FAERS Safety Report 18988784 (Version 1)
Quarter: 2021Q1

REPORT INFORMATION
  Report Type: Spontaneous
  Country: US (occurrence: US)
  Receive Date: 20210309
  Receipt Date: 20210309
  Transmission Date: 20210420
  Serious: Yes (Other)
  Sender: FDA-Public Use
  Company Number: US-JNJFOC-20210306594

PATIENT
  Age: 65 Year
  Sex: Male

DRUGS (1)
  1. SUDAFED PE SINUS CONGESTION [Suspect]
     Active Substance: PHENYLEPHRINE HYDROCHLORIDE
     Indication: SINUS CONGESTION
     Dosage: 1 TABLET TWICE A DAY
     Route: 048
     Dates: start: 20210225

REACTIONS (1)
  - Haematochezia [Not Recovered/Not Resolved]

NARRATIVE: CASE EVENT DATE: 20210228
